FAERS Safety Report 4786024-3 (Version None)
Quarter: 2005Q3

REPORT INFORMATION
  Report Type: 
  Country: None (occurrence: None)
  Receive Date: 20050930
  Receipt Date: 20050919
  Transmission Date: 20060218
  Serious: Yes (Hospitalization)
  Sender: FDA-Public Use
  Company Number: 2005-03534

PATIENT
  Sex: Female

DRUGS (1)
  1. TRELSTAR DEPOT [Suspect]
     Dosage: 3.75 G, UNKNOWN, INTRAMUSCULAR
     Route: 030
     Dates: start: 20050420, end: 20050420

REACTIONS (3)
  - EMOTIONAL DISORDER [None]
  - GENERAL PHYSICAL CONDITION ABNORMAL [None]
  - MENTAL DISORDER [None]
